FAERS Safety Report 19238716 (Version 1)
Quarter: 2021Q2

REPORT INFORMATION
  Report Type: Spontaneous
  Country: BR (occurrence: BR)
  Receive Date: 20210510
  Receipt Date: 20210510
  Transmission Date: 20210717
  Serious: Yes (Death, Hospitalization)
  Sender: FDA-Public Use
  Company Number: BR-PFIZER INC-2021480718

PATIENT
  Sex: Female

DRUGS (1)
  1. TOFACITINIB CITRATE [Suspect]
     Active Substance: TOFACITINIB CITRATE
     Dosage: 5 MG, 2X/DAY
     Dates: start: 2017

REACTIONS (3)
  - Cardiovascular disorder [Recovered/Resolved]
  - Acute myocardial infarction [Fatal]
  - COVID-19 [Unknown]

NARRATIVE: CASE EVENT DATE: 2019
